FAERS Safety Report 13711674 (Version 1)
Quarter: 2017Q3

REPORT INFORMATION
  Report Type: Spontaneous
  Country: US (occurrence: US)
  Receive Date: 20170703
  Receipt Date: 20170703
  Transmission Date: 20171127
  Serious: Yes (Hospitalization)
  Sender: FDA-Public Use
  Company Number: US-SA-2017SA114189

PATIENT
  Sex: Male

DRUGS (1)
  1. LANTUS [Suspect]
     Active Substance: INSULIN GLARGINE
     Dosage: DOSE:65 UNIT(S)
     Route: 051

REACTIONS (4)
  - Hypertension [Unknown]
  - Impaired work ability [Unknown]
  - Cerebrovascular accident [Unknown]
  - Blood glucose abnormal [Unknown]
